FAERS Safety Report 7884321-6 (Version None)
Quarter: 2011Q4

REPORT INFORMATION
  Report Type: 
  Country: None (occurrence: None)
  Receive Date: 20111102
  Receipt Date: 20111027
  Transmission Date: 20120403
  Serious: Yes (Death)
  Sender: FDA-Public Use
  Company Number: GB-ROCHE-1004475

PATIENT
  Sex: Female

DRUGS (9)
  1. BISOPROLOL [Concomitant]
  2. ASPIRIN [Concomitant]
  3. LUCENTIS [Suspect]
     Indication: PRODUCT USED FOR UNKNOWN INDICATION
     Route: 050
  4. PARACETAMOL [Concomitant]
  5. SIMVASTATIN [Concomitant]
  6. FUROSEMIDE [Concomitant]
  7. RAMIPRIL [Concomitant]
  8. FERROUS GLUCONATE [Concomitant]
  9. OMEPRAZOLE [Concomitant]

REACTIONS (1)
  - CARDIAC FAILURE CONGESTIVE [None]
